FAERS Safety Report 8926317 (Version 2)
Quarter: 2012Q4

REPORT INFORMATION
  Report Type: 
  Country: DE (occurrence: DE)
  Receive Date: 20121127
  Receipt Date: 20121205
  Transmission Date: 20130627
  Serious: Yes (Death, Life-Threatening)
  Sender: FDA-Public Use
  Company Number: DE-ASTELLAS-2012EU010201

PATIENT
  Age: 54 Year
  Sex: Male
  Weight: 100 kg

DRUGS (1)
  1. MICAFUNGIN [Suspect]
     Indication: CANDIDIASIS
     Dosage: 100 mg, Unknown/D
     Route: 042

REACTIONS (2)
  - Aortic rupture [Fatal]
  - Mediastinitis [Not Recovered/Not Resolved]
